FAERS Safety Report 25136084 (Version 1)
Quarter: 2025Q1

REPORT INFORMATION
  Report Type: Spontaneous
  Country: BR (occurrence: BR)
  Receive Date: 20250328
  Receipt Date: 20250328
  Transmission Date: 20250408
  Serious: Yes (Hospitalization, Other)
  Sender: BAYER HEALTHCARE PHARMACEUTICALS INC.
  Company Number: BR-BAYER-2025A040183

PATIENT
  Age: 14 Year
  Sex: Male

DRUGS (1)
  1. NEXAVAR [Suspect]
     Active Substance: SORAFENIB
     Dates: start: 20250306

REACTIONS (3)
  - Limb injury [Not Recovered/Not Resolved]
  - Desmoid tumour [None]
  - Product use issue [None]

NARRATIVE: CASE EVENT DATE: 20250301
